FAERS Safety Report 7830169-8 (Version None)
Quarter: 2011Q4

REPORT INFORMATION
  Report Type: 
  Country: None (occurrence: None)
  Receive Date: 20111021
  Receipt Date: 20111019
  Transmission Date: 20120403
  Serious: No
  Sender: FDA-Public Use
  Company Number: US-TEVA-305704USA

PATIENT
  Sex: Female

DRUGS (3)
  1. ALBUTEROL [Suspect]
  2. ALBUTEROL [Suspect]
  3. PROAIR HFA [Suspect]
     Route: 055

REACTIONS (3)
  - DRUG EFFECT DECREASED [None]
  - DYSPNOEA [None]
  - HEADACHE [None]
